FAERS Safety Report 5853386-5 (Version None)
Quarter: 2008Q3

REPORT INFORMATION
  Report Type: 
  Country: None (occurrence: None)
  Receive Date: 20080820
  Receipt Date: 20080303
  Transmission Date: 20090109
  Serious: Yes (Disabling)
  Sender: FDA-Public Use
  Company Number: US023934

PATIENT
  Age: 72 Year
  Sex: Male
  Weight: 92 kg

DRUGS (1)
  1. TRISENOX [Suspect]
     Indication: MYELODYSPLASTIC SYNDROME
     Dosage: UNK INTRAVENOUS DRIP
     Route: 041
     Dates: start: 20071211, end: 20080214

REACTIONS (1)
  - PSORIASIS [None]
